FAERS Safety Report 16726947 (Version 1)
Quarter: 2019Q3

REPORT INFORMATION
  Report Type: Spontaneous
  Country: US (occurrence: US)
  Receive Date: 20190821
  Receipt Date: 20190821
  Transmission Date: 20191005
  Serious: Yes (Other)
  Sender: FDA-Public Use
  Company Number: US-SHIRE-US201926501

PATIENT
  Age: 22 Month
  Sex: Male

DRUGS (4)
  1. ADVATE [Suspect]
     Active Substance: ANTIHEMOPHILIC FACTOR, HUMAN RECOMBINANT
     Dosage: 75 INTERNATIONAL UNIT, ADVATE 75 IU/ KG
     Route: 065
  2. ADVATE [Suspect]
     Active Substance: ANTIHEMOPHILIC FACTOR, HUMAN RECOMBINANT
     Indication: FACTOR VIII DEFICIENCY
     Dosage: 100 INTERNATIONAL UNIT/KILOGRAM; ADVATE 100 IU/KG
     Route: 065
  3. EMICIZUMAB. [Concomitant]
     Active Substance: EMICIZUMAB
     Indication: PROPHYLAXIS
  4. EMICIZUMAB. [Concomitant]
     Active Substance: EMICIZUMAB
     Indication: FACTOR VIII DEFICIENCY

REACTIONS (2)
  - Haemarthrosis [Unknown]
  - Off label use [Unknown]
